FAERS Safety Report 7317400-2 (Version None)
Quarter: 2011Q1

REPORT INFORMATION
  Report Type: 
  Country: None (occurrence: None)
  Receive Date: 20110226
  Receipt Date: 20101111
  Transmission Date: 20110831
  Serious: No
  Sender: FDA-Public Use
  Company Number: US-ALLERGAN-1013233US

PATIENT
  Age: 35 Year
  Sex: Female
  Weight: 67.12 kg

DRUGS (3)
  1. BOTOX COSMETIC [Suspect]
     Indication: SKIN WRINKLING
     Dosage: 22.2 UNITS, SINGLE
     Route: 030
     Dates: start: 20101008, end: 20101008
  2. METRONIDAZOLE [Concomitant]
     Indication: ROSACEA
     Dosage: UNK
     Route: 061
     Dates: start: 20101008
  3. DOXYCYCLINE [Concomitant]
     Indication: ROSACEA
     Dosage: 100 MG, QD
     Route: 048
     Dates: start: 20101008

REACTIONS (1)
  - GLOSSODYNIA [None]
